FAERS Safety Report 18200661 (Version 1)
Quarter: 2020Q3

REPORT INFORMATION
  Report Type: Spontaneous
  Country: US (occurrence: US)
  Receive Date: 20200827
  Receipt Date: 20200827
  Transmission Date: 20201103
  Serious: Yes (Hospitalization, Other)
  Sender: FDA-Public Use
  Company Number: US-AUROBINDO-AUR-APL-2020-040530

PATIENT
  Age: 61 Year
  Sex: Male

DRUGS (3)
  1. PEMETREXED. [Suspect]
     Active Substance: PEMETREXED
     Indication: NON-SMALL CELL LUNG CANCER METASTATIC
     Dosage: 500 MILLIGRAM/SQ. METER, EVERY 3 WEEKS
     Route: 065
  2. PEMBROLIZUMAB. [Suspect]
     Active Substance: PEMBROLIZUMAB
     Indication: NON-SMALL CELL LUNG CANCER METASTATIC
     Dosage: 200 MILLIGRAM
     Route: 065
  3. CARBOPLATIN. [Suspect]
     Active Substance: CARBOPLATIN
     Indication: NON-SMALL CELL LUNG CANCER METASTATIC
     Dosage: UNK (AREA UNDER THE CONCENTRATION?TIME CURVE, 5MG/ML/MINUTE)
     Route: 065

REACTIONS (14)
  - Tachypnoea [Unknown]
  - Human rhinovirus test positive [Unknown]
  - Pulmonary fibrosis [Unknown]
  - Acute myocardial infarction [Unknown]
  - Pleuritic pain [Unknown]
  - Dyspnoea [Unknown]
  - Interstitial lung disease [Unknown]
  - Condition aggravated [Unknown]
  - Pulmonary toxicity [Unknown]
  - Tachycardia [Unknown]
  - Enterovirus test positive [Unknown]
  - Respiratory failure [Unknown]
  - Cardiac failure congestive [Unknown]
  - Hypoxia [Unknown]
